FAERS Safety Report 4499451-9 (Version None)
Quarter: 2004Q4

REPORT INFORMATION
  Report Type: 
  Country: None (occurrence: None)
  Receive Date: 20040928
  Receipt Date: 20040630
  Transmission Date: 20050328
  Serious: No
  Sender: FDA-Public Use
  Company Number: 04P-163-0265399-00

PATIENT
  Age: 71 Year
  Sex: Female
  Weight: 54.4316 kg

DRUGS (7)
  1. HUMIRA [Suspect]
     Indication: RHEUMATOID ARTHRITIS
     Dosage: 40 MG, 1 IN 2 WK, SUBCUTANEOUS
     Route: 058
     Dates: start: 20030601, end: 20040501
  2. HUMIRA [Suspect]
     Indication: RHEUMATOID ARTHRITIS
     Dosage: 40 MG, 1 IN 2 WK, SUBCUTANEOUS
     Route: 058
     Dates: start: 20040606
  3. DIOVAN [Concomitant]
  4. PREDNISONE [Concomitant]
  5. ZOCOR [Concomitant]
  6. OMEPRAZOLE [Concomitant]
  7. ALENDRONATE SODIUM [Concomitant]

REACTIONS (1)
  - SINUSITIS [None]
